FAERS Safety Report 5412665-6 (Version None)
Quarter: 2007Q3

REPORT INFORMATION
  Report Type: 
  Country: None (occurrence: None)
  Receive Date: 20070813
  Receipt Date: 20070802
  Transmission Date: 20080115
  Serious: Yes (Hospitalization, Disabling)
  Sender: FDA-Public Use
  Company Number: CL-ROCHE-510269

PATIENT
  Age: 36 Year
  Sex: Female
  Weight: 58 kg

DRUGS (5)
  1. CLONAZEPAM [Suspect]
     Indication: ANXIETY
     Route: 048
     Dates: start: 20070505, end: 20070601
  2. TOPIRAMATE [Suspect]
     Indication: MOOD SWINGS
     Dosage: DRUG REPORTED AS TOPREL
     Route: 048
     Dates: start: 20070524, end: 20070528
  3. REFLEXAN [Concomitant]
     Indication: THERAPEUTIC PROCEDURE
     Route: 048
     Dates: start: 20070531, end: 20070531
  4. PROPANOL [Concomitant]
     Indication: HEADACHE
     Route: 048
     Dates: start: 20070505, end: 20070601
  5. PENICILLIN G BENZATHINE [Concomitant]
     Dosage: DRUG REPORTED AS PENCILLINE BENZATHINE
     Route: 030
     Dates: start: 20070526, end: 20070526

REACTIONS (1)
  - ANGLE CLOSURE GLAUCOMA [None]
